FAERS Safety Report 10256955 (Version 2)
Quarter: 2014Q3

REPORT INFORMATION
  Report Type: Report from Study
  Country: US (occurrence: US)
  Receive Date: 20140625
  Receipt Date: 20140717
  Transmission Date: 20150326
  Serious: No
  Sender: FDA-Public Use
  Company Number: US-ALEXION-A201402440

PATIENT

DRUGS (2)
  1. SOLIRIS [Suspect]
     Active Substance: ECULIZUMAB
     Indication: HAEMOLYTIC URAEMIC SYNDROME
     Dosage: 900 MG, QW
     Route: 042
  2. SOLIRIS [Suspect]
     Active Substance: ECULIZUMAB
     Dosage: 1200 MG, QW
     Route: 042
     Dates: start: 20140529

REACTIONS (7)
  - Back pain [Recovering/Resolving]
  - Pruritus [Unknown]
  - Arthralgia [Recovering/Resolving]
  - Hypertension [Unknown]
  - Fall [Unknown]
  - Abasia [Unknown]
  - Ear disorder [Unknown]

NARRATIVE: CASE EVENT DATE: 20140607
